FAERS Safety Report 19823180 (Version 2)
Quarter: 2021Q4

REPORT INFORMATION
  Report Type: Report from Study
  Country: US (occurrence: US)
  Receive Date: 20210913
  Receipt Date: 20211005
  Transmission Date: 20220303
  Serious: Yes (Hospitalization, Other)
  Sender: FDA-Public Use
  Company Number: US-BOEHRINGERINGELHEIM-2021-BI-109505

PATIENT
  Age: 77 Year
  Sex: Male

DRUGS (2)
  1. OFEV [Suspect]
     Active Substance: NINTEDANIB
     Indication: Idiopathic pulmonary fibrosis
     Dosage: OFEV DOSE 200MG DAILY
     Route: 048
     Dates: start: 20170627, end: 20210905
  2. OFEV [Suspect]
     Active Substance: NINTEDANIB
     Dosage: 100 MG BID
     Route: 048
     Dates: start: 20171205, end: 20210905

REACTIONS (6)
  - Cerebrovascular accident [Recovered/Resolved with Sequelae]
  - Transient ischaemic attack [Recovering/Resolving]
  - Disease complication [Unknown]
  - Motor dysfunction [Not Recovered/Not Resolved]
  - Asthenia [Not Recovered/Not Resolved]
  - Fatigue [Not Recovered/Not Resolved]
